FAERS Safety Report 5235349-6 (Version None)
Quarter: 2007Q1

REPORT INFORMATION
  Report Type: 
  Country: None (occurrence: None)
  Receive Date: 20070212
  Receipt Date: 20070130
  Transmission Date: 20070707
  Serious: Yes (Hospitalization, Other)
  Sender: FDA-Public Use
  Company Number: PHBS2007IT01861

PATIENT
  Age: 54 Year
  Sex: Male

DRUGS (3)
  1. LESCOL [Suspect]
     Indication: HYPERCHOLESTEROLAEMIA
     Dosage: 40 MG, QD
     Route: 048
     Dates: start: 20050101, end: 20070109
  2. BENAZEPRIL HYDROCHLORIDE [Concomitant]
     Dosage: 10MG + 12.5MG, UNKN
     Route: 048
  3. CARDURA [Concomitant]
     Dosage: 2 MG, UNK
     Route: 048

REACTIONS (3)
  - BLOOD CREATINE PHOSPHOKINASE INCREASED [None]
  - MYOPATHY [None]
  - NEUROPATHY PERIPHERAL [None]
